FAERS Safety Report 5418876-8 (Version None)
Quarter: 2007Q3

REPORT INFORMATION
  Report Type: 
  Country: None (occurrence: None)
  Receive Date: 20070718
  Receipt Date: 20070221
  Transmission Date: 20080115
  Serious: Yes (Hospitalization, Other)
  Sender: FDA-Public Use
  Company Number: 2006105621

PATIENT
  Sex: Male

DRUGS (2)
  1. CELEBREX [Suspect]
     Indication: PAIN
     Dosage: 400 MG (200 MG, 2 IN 1 D) ORAL
     Route: 048
     Dates: start: 19990825, end: 20020401
  2. VIOXX [Suspect]
     Dosage: ORAL
     Route: 048
     Dates: start: 19991216

REACTIONS (3)
  - DEEP VEIN THROMBOSIS [None]
  - DEPRESSION [None]
  - PULMONARY EMBOLISM [None]
